FAERS Safety Report 9468016 (Version 1)
Quarter: 2013Q3

REPORT INFORMATION
  Report Type: Spontaneous
  Country: US (occurrence: US)
  Receive Date: 20130821
  Receipt Date: 20130821
  Transmission Date: 20140515
  Serious: Yes (Other)
  Sender: FDA-Public Use
  Company Number: US-PFIZER INC-2013239024

PATIENT
  Age: 69 Year
  Sex: Female
  Weight: 58.96 kg

DRUGS (2)
  1. CELEBREX [Suspect]
     Indication: PAIN
     Dosage: 200 MG, 2X/DAY
     Route: 048
  2. COUMADIN [Concomitant]
     Dosage: UNK
     Dates: end: 2011

REACTIONS (2)
  - Breast cancer female [Unknown]
  - Thrombosis [Unknown]
